FAERS Safety Report 9879312 (Version 2)
Quarter: 2014Q1

REPORT INFORMATION
  Report Type: Spontaneous
  Country: JP (occurrence: JP)
  Receive Date: 20140206
  Receipt Date: 20140214
  Transmission Date: 20141002
  Serious: Yes (Other)
  Sender: FDA-Public Use
  Company Number: JP-KOWA-2014S1000078

PATIENT
  Age: 74 Year
  Sex: Female

DRUGS (8)
  1. LIVALO [Suspect]
     Indication: HYPERLIPIDAEMIA
     Route: 048
     Dates: start: 20100610, end: 20100831
  2. LIVALO [Suspect]
     Indication: HYPERLIPIDAEMIA
     Route: 048
     Dates: start: 20100901, end: 20130711
  3. FAMOTIDINE [Suspect]
     Indication: PROPHYLAXIS AGAINST GASTROINTESTINAL ULCER
     Route: 048
     Dates: start: 20080805, end: 20130801
  4. PLAVIX [Concomitant]
     Indication: CORONARY ARTERIAL STENT INSERTION
     Route: 048
     Dates: start: 20080903, end: 20130704
  5. PLAVIX [Concomitant]
     Indication: CORONARY ARTERIAL STENT INSERTION
     Route: 048
     Dates: start: 20131114
  6. BAYASPIRIN [Concomitant]
     Indication: ANGINA PECTORIS
     Route: 048
     Dates: start: 20080805
  7. CONIEL [Concomitant]
     Indication: ANGINA PECTORIS
     Route: 048
     Dates: start: 20121018
  8. PERINDOPRIL ERBUMINE [Concomitant]
     Indication: ANGINA PECTORIS
     Route: 048
     Dates: start: 20120315

REACTIONS (3)
  - Platelet count decreased [Recovering/Resolving]
  - Epistaxis [Recovered/Resolved]
  - Haemorrhage subcutaneous [Recovered/Resolved]
